FAERS Safety Report 4271427-6 (Version None)
Quarter: 2004Q1

REPORT INFORMATION
  Report Type: 
  Country: None (occurrence: None)
  Receive Date: 20040115
  Receipt Date: 20040109
  Transmission Date: 20041129
  Serious: Yes (Other)
  Sender: FDA-Public Use
  Company Number: US-BRISTOL-MYERS SQUIBB COMPANY-12475018

PATIENT
  Age: 69 Year
  Sex: Female
  Weight: 63 kg

DRUGS (9)
  1. GLUCOPHAGE [Suspect]
     Indication: DIABETES MELLITUS
     Route: 048
  2. ATACAND [Concomitant]
  3. LASIX [Concomitant]
  4. GLUCOTROL [Concomitant]
  5. NADOLOL [Concomitant]
  6. LIPITOR [Concomitant]
  7. VITAMIN C [Concomitant]
  8. CHROMIUM PICOLINATE [Concomitant]
  9. FLAXSEED OIL [Concomitant]

REACTIONS (2)
  - EYE HAEMORRHAGE [None]
  - VISUAL ACUITY REDUCED [None]
